FAERS Safety Report 24185811 (Version 5)
Quarter: 2024Q4

REPORT INFORMATION
  Report Type: Spontaneous
  Country: US (occurrence: US)
  Receive Date: 20240807
  Receipt Date: 20241110
  Transmission Date: 20250114
  Serious: Yes (Other)
  Sender: SANOFI AVENTIS
  Company Number: US-SA-SAC20240806000101

PATIENT
  Age: 43 Year
  Sex: Female

DRUGS (2)
  1. DUPIXENT [Suspect]
     Active Substance: DUPILUMAB
     Indication: Bronchopulmonary aspergillosis allergic
     Dosage: 600 MG, 1X
     Route: 058
     Dates: start: 20240730, end: 20240730
  2. DUPIXENT [Suspect]
     Active Substance: DUPILUMAB
     Indication: Asthma
     Dosage: 300 MG, QOW
     Route: 058
     Dates: start: 20240814

REACTIONS (10)
  - Seizure [Unknown]
  - Headache [Unknown]
  - Feeling abnormal [Unknown]
  - Migraine [Unknown]
  - Vision blurred [Unknown]
  - Dizziness [Unknown]
  - Hypersensitivity [Unknown]
  - Urticaria [Unknown]
  - Rash [Unknown]
  - Product use in unapproved indication [Unknown]

NARRATIVE: CASE EVENT DATE: 20240101
